FAERS Safety Report 9492928 (Version 3)
Quarter: 2013Q4

REPORT INFORMATION
  Report Type: Spontaneous
  Country: AU (occurrence: AU)
  Receive Date: 20130902
  Receipt Date: 20131201
  Transmission Date: 20140711
  Serious: Yes (Disabling)
  Sender: FDA-Public Use
  Company Number: AU-009507513-1308AUS011054

PATIENT
  Age: 49 Year
  Sex: 0

DRUGS (2)
  1. CARBIDOPA (+) LEVODOPA [Suspect]
     Indication: PARKINSON^S DISEASE
     Dosage: LEVODOPA: 1700 MG DAILY
     Route: 048
  2. CARBIDOPA (+) LEVODOPA [Suspect]
     Indication: PARKINSON^S DISEASE
     Dosage: LEVODOPA: 1700 MG DAILY
     Route: 048

REACTIONS (1)
  - Polyneuropathy [Not Recovered/Not Resolved]
